FAERS Safety Report 4930526-3 (Version None)
Quarter: 2006Q1

REPORT INFORMATION
  Report Type: 
  Country: None (occurrence: None)
  Receive Date: 20060302
  Receipt Date: 20051114
  Transmission Date: 20060701
  Serious: Yes (Hospitalization)
  Sender: FDA-Public Use
  Company Number: US-MERCK-0511USA02628

PATIENT
  Age: 50 Year
  Sex: Male
  Weight: 136 kg

DRUGS (12)
  1. VIOXX [Suspect]
     Indication: NECK PAIN
     Route: 048
     Dates: end: 20030101
  2. VIOXX [Suspect]
     Indication: BACK PAIN
     Route: 048
     Dates: end: 20030101
  3. AMARYL [Concomitant]
     Indication: DIABETES MELLITUS
     Route: 065
  4. AVANDIA [Concomitant]
     Indication: DIABETES MELLITUS
     Route: 065
  5. GLUCOPHAGE [Concomitant]
     Indication: DIABETES MELLITUS
     Route: 065
  6. METHOCARBAMOL [Concomitant]
     Indication: PAIN
     Route: 065
     Dates: start: 20010101
  7. NYSTATIN [Concomitant]
     Indication: ASTHMA
     Route: 065
  8. LIPITOR [Concomitant]
     Indication: BLOOD CHOLESTEROL INCREASED
     Route: 065
     Dates: start: 20000101
  9. LIPITOR [Concomitant]
     Indication: BLOOD TRIGLYCERIDES INCREASED
     Route: 065
     Dates: start: 20000101
  10. CELEBREX [Concomitant]
     Route: 065
     Dates: start: 20000101, end: 20000601
  11. ACETAMINOPHEN AND CODEINE [Concomitant]
     Indication: PAIN
     Route: 065
     Dates: start: 20010101, end: 20010601
  12. ACCUPRIL [Concomitant]
     Indication: HYPERTENSION
     Route: 065
     Dates: start: 20040101, end: 20050601

REACTIONS (7)
  - ARTERIOSCLEROSIS [None]
  - DEEP VEIN THROMBOSIS [None]
  - FEMORAL ARTERIAL STENOSIS [None]
  - FEMORAL ARTERY OCCLUSION [None]
  - ILIAC ARTERY STENOSIS [None]
  - PERIPHERAL ARTERIAL OCCLUSIVE DISEASE [None]
  - PERIPHERAL ISCHAEMIA [None]
